FAERS Safety Report 13547877 (Version 1)
Quarter: 2017Q2

REPORT INFORMATION
  Report Type: Spontaneous
  Country: US (occurrence: US)
  Receive Date: 20170516
  Receipt Date: 20170516
  Transmission Date: 20170830
  Serious: No
  Sender: FDA-Public Use
  Company Number: PHEH2017US014232

PATIENT
  Sex: Female

DRUGS (1)
  1. BRINZOLAMIDE [Suspect]
     Active Substance: BRINZOLAMIDE
     Indication: EYE INFECTION
     Dosage: 1 GTT, QD
     Route: 047

REACTIONS (3)
  - Eye irritation [Unknown]
  - Product intolerance [Unknown]
  - Lacrimation increased [Unknown]
